FAERS Safety Report 4901499-4 (Version None)
Quarter: 2006Q1

REPORT INFORMATION
  Report Type: 
  Country: None (occurrence: None)
  Receive Date: 20060201
  Receipt Date: 20060201
  Transmission Date: 20060701
  Serious: Yes (Hospitalization)
  Sender: FDA-Public Use
  Company Number: None

PATIENT
  Age: 73 Year
  Sex: Male

DRUGS (9)
  1. ALLOPURINOL [Suspect]
     Indication: GOUT
     Dosage: DAILY PO
     Route: 048
  2. ATACAND [Concomitant]
  3. SPIRONOLACTONE [Concomitant]
  4. FUROSEMIDE [Concomitant]
  5. TOPROL [Concomitant]
  6. ASPIRIN [Concomitant]
  7. COUMADIN [Concomitant]
  8. LIPITOR [Concomitant]
  9. METRONIDAZOLE [Concomitant]

REACTIONS (7)
  - BODY TEMPERATURE INCREASED [None]
  - EOSINOPHILIA [None]
  - HYPOTENSION [None]
  - PAIN [None]
  - PRURITUS [None]
  - PURPURA [None]
  - RASH [None]
